FAERS Safety Report 24121193 (Version 2)
Quarter: 2024Q3

REPORT INFORMATION
  Report Type: Spontaneous
  Country: JP (occurrence: JP)
  Receive Date: 20240722
  Receipt Date: 20240904
  Transmission Date: 20241017
  Serious: No
  Sender: UCB
  Company Number: JP-UCBSA-2024031254

PATIENT

DRUGS (1)
  1. NEUPRO [Suspect]
     Active Substance: ROTIGOTINE
     Indication: Product used for unknown indication
     Dosage: 2 DOSAGE FORM (4.5 MG)

REACTIONS (1)
  - Product adhesion issue [Unknown]
